FAERS Safety Report 6456801-1 (Version None)
Quarter: 2009Q4

REPORT INFORMATION
  Report Type: 
  Country: None (occurrence: None)
  Receive Date: 20091125
  Receipt Date: 20091117
  Transmission Date: 20100525
  Serious: Yes (Hospitalization)
  Sender: FDA-Public Use
  Company Number: US-ROCHE-658343

PATIENT
  Sex: Female
  Weight: 106.1 kg

DRUGS (4)
  1. CAPECITABINE [Suspect]
     Indication: COLON CANCER
     Route: 048
     Dates: start: 20060101
  2. CAPECITABINE [Suspect]
     Route: 048
     Dates: start: 20070101
  3. CAPECITABINE [Suspect]
     Route: 048
     Dates: start: 20081101
  4. CAPECITABINE [Suspect]
     Route: 048
     Dates: start: 20090302, end: 20090914

REACTIONS (3)
  - MALIGNANT NEOPLASM PROGRESSION [None]
  - POST PROCEDURAL COMPLICATION [None]
  - SMALL INTESTINAL OBSTRUCTION [None]
